FAERS Safety Report 5736531-1 (Version None)
Quarter: 2008Q2

REPORT INFORMATION
  Report Type: 
  Country: None (occurrence: None)
  Receive Date: 20080508
  Receipt Date: 20080429
  Transmission Date: 20081010
  Serious: Yes (Hospitalization)
  Sender: FDA-Public Use
  Company Number: CIO08007288

PATIENT
  Sex: Female

DRUGS (1)
  1. VAPORUB, FORM/VERSION UNKNOWN(CAMPHOR 129-150 MG, CEDAR LEAF OIL UNKNO [Suspect]
     Dosage: 1 APPLIC, 1 ONLY, TOPICAL
     Route: 061
     Dates: start: 20080425, end: 20080425

REACTIONS (5)
  - DEPRESSED LEVEL OF CONSCIOUSNESS [None]
  - HYPERHIDROSIS [None]
  - LOSS OF CONSCIOUSNESS [None]
  - PYREXIA [None]
  - SOMNOLENCE [None]
